FAERS Safety Report 20743251 (Version 1)
Quarter: 2022Q2

REPORT INFORMATION
  Report Type: Report from Study
  Country: US (occurrence: US)
  Receive Date: 20220425
  Receipt Date: 20220425
  Transmission Date: 20220721
  Serious: Yes (Other)
  Sender: FDA-Public Use
  Company Number: US-BRISTOL-MYERS SQUIBB COMPANY-2022-024235

PATIENT
  Age: 60 Year
  Sex: Male
  Weight: 161 kg

DRUGS (1)
  1. REVLIMID [Suspect]
     Active Substance: LENALIDOMIDE
     Indication: Plasma cell myeloma
     Dosage: 25 MG CAPS-21/BTL
     Route: 065

REACTIONS (8)
  - Arthralgia [Unknown]
  - Musculoskeletal chest pain [Unknown]
  - Pain in jaw [Unknown]
  - Headache [Unknown]
  - Rib fracture [Unknown]
  - Blood potassium decreased [Unknown]
  - Blood magnesium decreased [Unknown]
  - Tremor [Unknown]
